FAERS Safety Report 14276703 (Version 2)
Quarter: 2017Q4

REPORT INFORMATION
  Report Type: Report from Study
  Country: US (occurrence: US)
  Receive Date: 20171212
  Receipt Date: 20171221
  Transmission Date: 20180321
  Serious: Yes (Hospitalization)
  Sender: FDA-Public Use
  Company Number: US-PFIZER INC-2017518851

PATIENT
  Age: 75 Year
  Sex: Male
  Weight: 126.2 kg

DRUGS (2)
  1. AXITINIB [Suspect]
     Active Substance: AXITINIB
     Indication: RENAL CELL CARCINOMA
     Dosage: 2 MG, 2X/DAY
     Route: 048
     Dates: start: 20170125, end: 20171130
  2. CRIZOTINIB [Suspect]
     Active Substance: CRIZOTINIB
     Indication: RENAL CELL CARCINOMA
     Dosage: 250 MG, 2X/DAY
     Route: 048
     Dates: start: 20170125, end: 20171130

REACTIONS (2)
  - Myocardial infarction [Recovered/Resolved]
  - Retinal artery occlusion [Recovered/Resolved with Sequelae]

NARRATIVE: CASE EVENT DATE: 20171129
